FAERS Safety Report 14111974 (Version 1)
Quarter: 2017Q4

REPORT INFORMATION
  Report Type: Spontaneous
  Country: MX (occurrence: MX)
  Receive Date: 20171020
  Receipt Date: 20171020
  Transmission Date: 20180321
  Serious: Yes (Other)
  Sender: FDA-Public Use
  Company Number: MX-TEVA-817069ISR

PATIENT
  Age: 40 Year
  Sex: Female

DRUGS (1)
  1. AZILECT [Suspect]
     Active Substance: RASAGILINE MESYLATE
     Indication: PARKINSON^S DISEASE
     Dosage: 1 MILLIGRAM DAILY;
     Route: 048
     Dates: start: 20160501, end: 201706

REACTIONS (5)
  - Aphasia [Unknown]
  - Gastrointestinal tube insertion [Unknown]
  - Movement disorder [Unknown]
  - Malaise [Unknown]
  - Tremor [Unknown]

NARRATIVE: CASE EVENT DATE: 201706
